FAERS Safety Report 16745813 (Version 1)
Quarter: 2019Q4

REPORT INFORMATION
  Report Type: Spontaneous
  Country: US (occurrence: US)
  Receive Date: 20190827
  Receipt Date: 20190827
  Transmission Date: 20200122
  Serious: Yes (Other)
  Sender: FDA-Public Use
  Company Number: None

PATIENT
  Age: 2 Year
  Sex: Male
  Weight: 12.6 kg

DRUGS (5)
  1. ZONEGRAM [Concomitant]
  2. CBD OIL [Concomitant]
     Active Substance: CANNABIDIOL\HERBALS
  3. CLOBAZAM. [Concomitant]
     Active Substance: CLOBAZAM
  4. FLINTSTONE GUMMIES [Concomitant]
  5. OXCARBAZEPINE. [Suspect]
     Active Substance: OXCARBAZEPINE
     Indication: EPILEPSY
     Dosage: ?          QUANTITY:2 ML;?
     Route: 048
     Dates: start: 20190813, end: 20190824

REACTIONS (4)
  - Abdominal pain [None]
  - Gastrointestinal disorder [None]
  - Diarrhoea [None]
  - Screaming [None]

NARRATIVE: CASE EVENT DATE: 20190822
